FAERS Safety Report 8232032-X (Version None)
Quarter: 2012Q1

REPORT INFORMATION
  Report Type: 
  Country: None (occurrence: None)
  Receive Date: 20120321
  Receipt Date: 20120306
  Transmission Date: 20120608
  Serious: Yes (Hospitalization)
  Sender: FDA-Public Use
  Company Number: FK201200756

PATIENT
  Age: 74 Year
  Sex: Male

DRUGS (2)
  1. ETOPOSIDE [Suspect]
     Indication: MALIGNANT PLEURAL EFFUSION
     Dosage: 100 MG/M2, 1 D, INTRAVENOUS (NOT OTHERWISE SPECIFIED)
     Route: 042
  2. CISPLATIN [Suspect]
     Indication: MALIGNANT PLEURAL EFFUSION
     Dosage: SEE IMAGE
     Route: 042

REACTIONS (4)
  - HYPERCOAGULATION [None]
  - AORTIC THROMBOSIS [None]
  - PLATELET COUNT DECREASED [None]
  - MALAISE [None]
